FAERS Safety Report 12915838 (Version 2)
Quarter: 2016Q4

REPORT INFORMATION
  Report Type: Report from Study
  Country: DE (occurrence: DE)
  Receive Date: 20161107
  Receipt Date: 20161118
  Transmission Date: 20170207
  Serious: Yes (Hospitalization)
  Sender: FDA-Public Use
  Company Number: DE-ROCHE-1850006

PATIENT
  Age: 56 Year
  Sex: Female
  Weight: 76 kg

DRUGS (9)
  1. PANTOZOL [Concomitant]
     Active Substance: PANTOPRAZOLE SODIUM
     Route: 048
     Dates: start: 20161027
  2. PARACETAMOL [Concomitant]
     Active Substance: ACETAMINOPHEN
     Route: 042
     Dates: start: 20161027
  3. BEVACIZUMAB [Suspect]
     Active Substance: BEVACIZUMAB
     Indication: OVARIAN CANCER
     Dosage: DATE OF LAST DOSE PRIOR TO SAE: 21/OCT/2016
     Route: 042
     Dates: start: 20150424
  4. CARBOPLATIN. [Suspect]
     Active Substance: CARBOPLATIN
     Indication: OVARIAN CANCER
     Dosage: DAY 1?DATE OF LAST DOSE PRIOR TO SAE : 07/MAR/2015
     Route: 065
     Dates: start: 20150824
  5. JONOSTERIL [Concomitant]
     Active Substance: CALCIUM ACETATE\MAGNESIUM ACETATE\POTASSIUM ACETATE\SODIUM ACETATE\SODIUM CHLORIDE
     Route: 042
  6. GEMCITABINE [Suspect]
     Active Substance: GEMCITABINE\GEMCITABINE HYDROCHLORIDE
     Indication: OVARIAN CANCER
     Dosage: ON DAY 1 AND ON DAY8?LAST DOSE PRIOR TO SAEWAS 14:AUG/2015
     Route: 042
     Dates: start: 20150424
  7. BISOHEXAL [Concomitant]
     Active Substance: BISOPROLOL FUMARATE
     Route: 048
     Dates: start: 20161027
  8. DELIX (GERMANY) [Concomitant]
     Route: 048
     Dates: start: 20161027
  9. AMPICILLIN [Concomitant]
     Active Substance: AMPICILLIN
     Route: 042
     Dates: start: 20161027

REACTIONS (1)
  - Bile duct stone [Recovered/Resolved]

NARRATIVE: CASE EVENT DATE: 20161027
